FAERS Safety Report 17983889 (Version 1)
Quarter: 2020Q3

REPORT INFORMATION
  Report Type: Spontaneous
  Country: GB (occurrence: GB)
  Receive Date: 20200706
  Receipt Date: 20200706
  Transmission Date: 20201103
  Serious: Yes (Other)
  Sender: FDA-Public Use
  Company Number: GB-PFIZER INC-2020253428

PATIENT
  Age: 44 Year
  Sex: Female
  Weight: 51.25 kg

DRUGS (1)
  1. PROVERA [Suspect]
     Active Substance: MEDROXYPROGESTERONE ACETATE
     Indication: ENDOMETRIOSIS
     Dosage: 10 MG
     Route: 048
     Dates: start: 20200612, end: 20200613

REACTIONS (8)
  - Pyrexia [Unknown]
  - Rash pruritic [Recovered/Resolved with Sequelae]
  - Headache [Unknown]
  - Joint stiffness [Recovered/Resolved]
  - Musculoskeletal stiffness [Recovered/Resolved]
  - Cough [Recovered/Resolved with Sequelae]
  - Migraine [Recovered/Resolved]
  - Pyrexia [Recovered/Resolved]

NARRATIVE: CASE EVENT DATE: 2020
